FAERS Safety Report 20025782 (Version 1)
Quarter: 2021Q4

REPORT INFORMATION
  Report Type: Spontaneous
  Country: DK (occurrence: DK)
  Receive Date: 20211102
  Receipt Date: 20211102
  Transmission Date: 20220304
  Serious: Yes (Hospitalization)
  Sender: FDA-Public Use
  Company Number: None

PATIENT
  Age: 77 Year
  Sex: Male

DRUGS (1)
  1. DESMOPRESSIN [Suspect]
     Active Substance: DESMOPRESSIN
     Indication: Nocturia
     Dosage: .3 MILLIGRAM DAILY; STRENGTH: 0.1 MG, DOSED 3 TIMES A DAY
     Route: 048
     Dates: start: 20200501, end: 20210624

REACTIONS (3)
  - Hyponatraemia [Recovering/Resolving]
  - Monoparesis [Unknown]
  - General physical health deterioration [Unknown]

NARRATIVE: CASE EVENT DATE: 20210601
